FAERS Safety Report 4572656-4 (Version None)
Quarter: 2005Q1

REPORT INFORMATION
  Report Type: 
  Country: None (occurrence: None)
  Receive Date: 20050208
  Receipt Date: 20041108
  Transmission Date: 20050727
  Serious: No
  Sender: FDA-Public Use
  Company Number: US-GLAXOSMITHKLINE-A0533098A

PATIENT
  Sex: Male

DRUGS (4)
  1. PAXIL CR [Suspect]
     Dosage: 50MG PER DAY
     Route: 048
     Dates: start: 20030101
  2. SEROQUEL [Concomitant]
  3. TOPAMAX [Concomitant]
  4. WELLBUTRIN XL [Concomitant]

REACTIONS (1)
  - LOSS OF LIBIDO [None]
